FAERS Safety Report 4978642-4 (Version None)
Quarter: 2006Q2

REPORT INFORMATION
  Report Type: 
  Country: None (occurrence: None)
  Receive Date: 20060420
  Receipt Date: 20051020
  Transmission Date: 20061013
  Serious: Yes (Other)
  Sender: FDA-Public Use
  Company Number: US-MERCK-0510USA08428

PATIENT
  Age: 42 Year
  Sex: Female
  Weight: 73 kg

DRUGS (15)
  1. VIOXX [Suspect]
     Indication: OSTEOARTHRITIS
     Route: 048
     Dates: start: 19981001, end: 20010201
  2. VIOXX [Suspect]
     Route: 048
     Dates: start: 19981001, end: 20010201
  3. VIOXX [Suspect]
     Indication: FIBROMYALGIA
     Route: 048
     Dates: start: 19981001, end: 20010201
  4. VIOXX [Suspect]
     Route: 048
     Dates: start: 19981001, end: 20010201
  5. SLO-BID [Concomitant]
     Indication: ASTHMA
     Route: 065
  6. SOMA [Concomitant]
     Indication: FIBROMYALGIA
     Route: 065
  7. EFFEXOR [Concomitant]
     Indication: DEPRESSION
     Route: 065
     Dates: start: 19920101, end: 20010101
  8. BUSPAR [Concomitant]
     Indication: DEPRESSION
     Route: 065
  9. LIPITOR [Concomitant]
     Indication: BLOOD CHOLESTEROL
     Route: 065
     Dates: start: 19970101, end: 20040101
  10. SINGULAIR [Concomitant]
     Route: 065
  11. SEREVENT [Concomitant]
     Route: 065
  12. HYDROCODONE BITARTRATE [Concomitant]
     Route: 065
  13. DIAZEPAM [Concomitant]
     Route: 065
     Dates: start: 19980101
  14. ASPIRIN [Concomitant]
     Route: 065
     Dates: start: 19990101
  15. CELEBREX [Concomitant]
     Route: 065
     Dates: start: 19990101

REACTIONS (5)
  - ANXIETY [None]
  - CEREBROVASCULAR ACCIDENT [None]
  - HYPERTENSION [None]
  - MYOCARDIAL INFARCTION [None]
  - THROMBOSIS [None]
